FAERS Safety Report 14212177 (Version 6)
Quarter: 2017Q4

REPORT INFORMATION
  Report Type: Report from Study
  Country: TW (occurrence: TW)
  Receive Date: 20171122
  Receipt Date: 20171227
  Transmission Date: 20180321
  Serious: Yes (Hospitalization)
  Sender: FDA-Public Use
  Company Number: TW-JNJFOC-20171120425

PATIENT
  Age: 57 Year
  Sex: Male

DRUGS (11)
  1. STELARA [Suspect]
     Active Substance: USTEKINUMAB
     Indication: PSORIASIS
     Dosage: TWO INJECTIONS
     Route: 058
     Dates: start: 20150728
  2. DEXTROMETHORPHAN [Concomitant]
     Active Substance: DEXTROMETHORPHAN
     Route: 065
     Dates: start: 20171129
  3. STELARA [Suspect]
     Active Substance: USTEKINUMAB
     Indication: PSORIASIS
     Dosage: ONE INJECTION
     Route: 058
     Dates: start: 20160715
  4. ACTEIN [Concomitant]
     Dosage: 2PKG
     Route: 065
     Dates: start: 20171129
  5. STELARA [Suspect]
     Active Substance: USTEKINUMAB
     Indication: PSORIASIS
     Dosage: TWO INJECTIONS
     Route: 058
     Dates: start: 20150626
  6. STELARA [Suspect]
     Active Substance: USTEKINUMAB
     Indication: PSORIASIS
     Dosage: ONE INJECTION
     Route: 058
     Dates: start: 20160420
  7. ACETAMINOPHEN. [Concomitant]
     Active Substance: ACETAMINOPHEN
     Indication: PAIN
     Route: 065
     Dates: start: 20171129
  8. STELARA [Suspect]
     Active Substance: USTEKINUMAB
     Indication: PSORIASIS
     Dosage: ONE INJECTION
     Route: 058
     Dates: start: 20151223
  9. ACITRETIN. [Concomitant]
     Active Substance: ACITRETIN
     Route: 048
     Dates: start: 20151013
  10. BAIN [Concomitant]
     Indication: PAIN
     Route: 065
     Dates: start: 20171129
  11. ACITRETIN. [Concomitant]
     Active Substance: ACITRETIN
     Indication: PSORIASIS
     Route: 065
     Dates: start: 20171201

REACTIONS (3)
  - Lymphadenopathy [Unknown]
  - Squamous cell carcinoma of the hypopharynx [Unknown]
  - Lung infection [Unknown]

NARRATIVE: CASE EVENT DATE: 20171105
